FAERS Safety Report 21231478 (Version 1)
Quarter: 2022Q3

REPORT INFORMATION
  Report Type: Spontaneous
  Country: AU (occurrence: AU)
  Receive Date: 20220819
  Receipt Date: 20220819
  Transmission Date: 20221026
  Serious: Yes (Disabling)
  Sender: FDA-Public Use
  Company Number: AU-ORGANON-O2208AUS001419

PATIENT
  Sex: Female

DRUGS (1)
  1. ETONOGESTREL [Suspect]
     Active Substance: ETONOGESTREL
     Dosage: 1 IMPLANT IN RIGHT ARM
     Route: 059
     Dates: start: 2019, end: 2022

REACTIONS (7)
  - Mobility decreased [Not Recovered/Not Resolved]
  - Scar [Not Recovered/Not Resolved]
  - Neuralgia [Not Recovered/Not Resolved]
  - Myalgia [Not Recovered/Not Resolved]
  - Discomfort [Unknown]
  - Device placement issue [Recovered/Resolved]
  - Wrong technique in product usage process [Unknown]

NARRATIVE: CASE EVENT DATE: 20190101
